FAERS Safety Report 10697818 (Version 1)
Quarter: 2015Q1

REPORT INFORMATION
  Report Type: Report from Study
  Country: CO (occurrence: CO)
  Receive Date: 20150108
  Receipt Date: 20150108
  Transmission Date: 20150721
  Serious: Yes (Death, Other)
  Sender: FDA-Public Use
  Company Number: CO-ABBVIE-15K-036-1329604-00

PATIENT
  Age: 68 Year
  Sex: Female
  Weight: 52.5 kg

DRUGS (1)
  1. ZEMPLAR [Suspect]
     Active Substance: PARICALCITOL
     Indication: HYPERPARATHYROIDISM SECONDARY
     Route: 065
     Dates: start: 20141209, end: 20141223

REACTIONS (4)
  - Trypanosoma serology positive [Unknown]
  - Pulmonary embolism [Fatal]
  - General physical health deterioration [Unknown]
  - Respiratory failure [Fatal]

NARRATIVE: CASE EVENT DATE: 20141231
